FAERS Safety Report 4711407-7 (Version None)
Quarter: 2005Q3

REPORT INFORMATION
  Report Type: 
  Country: None (occurrence: None)
  Receive Date: 20050711
  Receipt Date: 20050627
  Transmission Date: 20060218
  Serious: Yes (Death)
  Sender: FDA-Public Use
  Company Number: 2004235029US

PATIENT
  Age: 18 Year
  Sex: Female

DRUGS (2)
  1. CYTOTEC [Suspect]
     Indication: ABORTION INDUCED
     Dates: start: 20030910
  2. MIFEPREX [Suspect]
     Indication: ABORTION INDUCED
     Dates: start: 20030910

REACTIONS (5)
  - ASTHENIA [None]
  - CONSTIPATION [None]
  - DRUG EXPOSURE DURING PREGNANCY [None]
  - MUSCLE SPASMS [None]
  - SEPTIC SHOCK [None]
